FAERS Safety Report 4426423-2 (Version None)
Quarter: 2004Q3

REPORT INFORMATION
  Report Type: 
  Country: None (occurrence: None)
  Receive Date: 20040811
  Receipt Date: 20040723
  Transmission Date: 20050211
  Serious: Yes (Life-Threatening)
  Sender: FDA-Public Use
  Company Number: GBS040514980

PATIENT
  Age: 65 Year
  Sex: Male
  Weight: 60 kg

DRUGS (12)
  1. XIGRIS [Suspect]
     Indication: SEPSIS
     Dates: start: 20040515
  2. PROPOFOL [Concomitant]
  3. ADRENALINE [Concomitant]
  4. DOPEXAMINE [Concomitant]
  5. PABRINEX [Concomitant]
  6. NORADRENALINE [Concomitant]
  7. BUMETANIDE [Concomitant]
  8. INSULIN [Concomitant]
  9. MANNITOL [Concomitant]
  10. ALFENTANIL [Concomitant]
  11. MEROPENEM [Concomitant]
  12. VITAMIN K TAB [Concomitant]

REACTIONS (1)
  - PLATELET COUNT DECREASED [None]
